FAERS Safety Report 20663807 (Version 2)
Quarter: 2022Q2

REPORT INFORMATION
  Report Type: Report from Study
  Country: CA (occurrence: CA)
  Receive Date: 20220401
  Receipt Date: 20220513
  Transmission Date: 20220721
  Serious: Yes (Death, Hospitalization, Other)
  Sender: FDA-Public Use
  Company Number: CA-GLAXOSMITHKLINE-CA2022057203

PATIENT

DRUGS (1)
  1. MEPOLIZUMAB [Suspect]
     Active Substance: MEPOLIZUMAB
     Indication: Asthma
     Dosage: 100 MG, Z, EVERY 4 WEEKS
     Route: 058
     Dates: start: 20210203

REACTIONS (4)
  - Death [Fatal]
  - Pneumonia [Unknown]
  - Cardiac dysfunction [Unknown]
  - Pleural effusion [Recovered/Resolved]

NARRATIVE: CASE EVENT DATE: 20220216
